FAERS Safety Report 5445320-7 (Version None)
Quarter: 2007Q3

REPORT INFORMATION
  Report Type: 
  Country: None (occurrence: None)
  Receive Date: 20070906
  Receipt Date: 20070425
  Transmission Date: 20080115
  Serious: No
  Sender: FDA-Public Use
  Company Number: A0648938A

PATIENT
  Sex: Female

DRUGS (1)
  1. REQUIP [Suspect]
     Indication: RESTLESS LEGS SYNDROME
     Dosage: .5MG AT NIGHT
     Route: 048
     Dates: start: 20070420

REACTIONS (1)
  - SOMNOLENCE [None]
